FAERS Safety Report 6148869-7 (Version None)
Quarter: 2009Q2

REPORT INFORMATION
  Report Type: 
  Country: None (occurrence: None)
  Receive Date: 20090407
  Receipt Date: 20090323
  Transmission Date: 20091009
  Serious: Yes (Other)
  Sender: FDA-Public Use
  Company Number: 232705K09USA

PATIENT
  Age: 70 Year
  Sex: Female

DRUGS (11)
  1. REBIF [Suspect]
     Indication: MULTIPLE SCLEROSIS
     Dosage: 22 MCG, 3 IN 1 WEEKS, SUBCUTANEOUS; 44 MCG, 3  IN 1 WEEKS SUBCUTANEOUS
     Route: 058
     Dates: start: 20080814
  2. REBIF [Suspect]
     Indication: MULTIPLE SCLEROSIS
     Dosage: 22 MCG, 3 IN 1 WEEKS, SUBCUTANEOUS; 44 MCG, 3  IN 1 WEEKS SUBCUTANEOUS
     Route: 058
     Dates: start: 20081008
  3. CHLORZOXAZONE [Concomitant]
  4. SAL-TROPINE (ATROPINE SULFATE) [Concomitant]
  5. OMEPRAZOLE [Concomitant]
  6. LORAZEPAM [Concomitant]
  7. DETROL [Concomitant]
  8. EXTRA STRENGTH TYLENOL [Concomitant]
  9. TYLENOL WITH CODEINE (PANADEINE CO) [Concomitant]
  10. SIMVASTATIN [Concomitant]
  11. TYLENOL PM (TYLENOL PM) [Concomitant]

REACTIONS (1)
  - LYMPHOMA [None]
